FAERS Safety Report 25804420 (Version 2)
Quarter: 2025Q3

REPORT INFORMATION
  Report Type: Report from Study
  Country: US (occurrence: US)
  Receive Date: 20250915
  Receipt Date: 20250922
  Transmission Date: 20251020
  Serious: Yes (Hospitalization)
  Sender: SANDOZ
  Company Number: US-002147023-NVSC2025US141957

PATIENT
  Age: 73 Year
  Sex: Male
  Weight: 85.5 kg

DRUGS (17)
  1. FLUOROURACIL [Suspect]
     Active Substance: FLUOROURACIL
     Indication: Neoplasm
     Dosage: 4550 MG, Q2W
     Route: 042
     Dates: start: 20250812, end: 20250812
  2. IRINOTECAN [Suspect]
     Active Substance: IRINOTECAN
     Indication: Neoplasm
     Dosage: 280 MG, Q2W
     Route: 042
     Dates: start: 20250812, end: 20250812
  3. OXALIPLATIN [Suspect]
     Active Substance: OXALIPLATIN
     Indication: Neoplasm
     Dosage: 160 MG, Q2W
     Route: 042
     Dates: start: 20250812, end: 20250812
  4. ATROPINE [Concomitant]
     Active Substance: ATROPINE
     Indication: Neoplasm
     Dosage: 0.4 MG, QD
     Route: 058
     Dates: start: 20250812, end: 20250812
  5. DEXAMETHASONE [Concomitant]
     Active Substance: DEXAMETHASONE
     Indication: Neoplasm
     Dosage: 12 MG, QD
     Route: 048
     Dates: start: 20250812, end: 20250812
  6. ELIQUIS [Concomitant]
     Active Substance: APIXABAN
     Indication: Cerebrovascular accident
     Dosage: 10 MG, QD
     Route: 048
     Dates: start: 20250807
  7. ESCITALOPRAM [Concomitant]
     Active Substance: ESCITALOPRAM OXALATE
     Indication: Anxiety
     Dosage: 10 MG, QD
     Route: 048
     Dates: start: 20250804
  8. LORAZEPAM [Concomitant]
     Active Substance: LORAZEPAM
     Indication: Anxiety
     Dosage: 0.5 MG, QD
     Route: 048
     Dates: start: 20250804
  9. OLMESARTAN MEDOXOMIL [Concomitant]
     Active Substance: OLMESARTAN MEDOXOMIL
     Indication: Hypertension
     Dosage: 5 MG, QD
     Route: 048
     Dates: start: 20250701
  10. ONDANSETRON [Concomitant]
     Active Substance: ONDANSETRON
     Indication: Nausea
     Dosage: 8 MG, EVERY 6 HRS
     Route: 048
     Dates: start: 20250627
  11. OXYCODONE [Concomitant]
     Active Substance: OXYCODONE
     Indication: Neoplasm
     Route: 048
  12. PALONOSETRON [Concomitant]
     Active Substance: PALONOSETRON
     Indication: Neoplasm
     Dosage: 0.25 MG, QD
     Route: 042
     Dates: start: 20250812, end: 20250812
  13. PANTOPRAZOLE SODIUM [Concomitant]
     Active Substance: PANTOPRAZOLE SODIUM
     Indication: Gastrooesophageal reflux disease
     Dosage: 40 MG, QD
     Route: 048
     Dates: start: 20250710
  14. PEGFILGRASTIM [Concomitant]
     Active Substance: PEGFILGRASTIM
     Indication: Chemotherapy
     Route: 058
     Dates: start: 20250814, end: 20250814
  15. PROCHLORPERAZINE [Concomitant]
     Active Substance: PROCHLORPERAZINE
     Indication: Nausea
     Dosage: 10 MG, EVERY 6 HRS
     Route: 048
     Dates: start: 20250807
  16. SENOKOT-S [Concomitant]
     Active Substance: DOCUSATE SODIUM\SENNOSIDES
     Indication: Constipation
     Dosage: 100 MG, TID
     Route: 048
     Dates: start: 20250701
  17. ZOLPIDEM [Concomitant]
     Active Substance: ZOLPIDEM TARTRATE
     Indication: Insomnia
     Dosage: 6.25 MG, QD
     Route: 048
     Dates: start: 20250812

REACTIONS (2)
  - Gastrointestinal haemorrhage [Recovered/Resolved]
  - Gastritis erosive [Recovered/Resolved]

NARRATIVE: CASE EVENT DATE: 20250816
